FAERS Safety Report 12199603 (Version 1)
Quarter: 2016Q1

REPORT INFORMATION
  Report Type: Spontaneous
  Country: US (occurrence: US)
  Receive Date: 20160322
  Receipt Date: 20160322
  Transmission Date: 20160526
  Serious: No
  Sender: FDA-Public Use
  Company Number: US-BAYER-2016-055301

PATIENT
  Sex: Female

DRUGS (3)
  1. CLARITIN REDITABS [Suspect]
     Active Substance: LORATADINE
     Indication: SEASONAL ALLERGY
     Dosage: 1 DF, EVERY 12 HOURS
     Route: 048
     Dates: start: 2011, end: 2013
  2. TYLENOL [Concomitant]
     Active Substance: ACETAMINOPHEN
  3. ALLERGY SHOTS [Concomitant]
     Active Substance: UNSPECIFIED INGREDIENT

REACTIONS (3)
  - Sneezing [None]
  - Rhinorrhoea [None]
  - Rash [None]
